FAERS Safety Report 9413277 (Version 1)
Quarter: 2013Q3

REPORT INFORMATION
  Report Type: Spontaneous
  Country: US (occurrence: US)
  Receive Date: 20130722
  Receipt Date: 20130722
  Transmission Date: 20140515
  Serious: Yes (Other)
  Sender: FDA-Public Use
  Company Number: CHPA2013US011331

PATIENT
  Age: 48 Year
  Sex: Male

DRUGS (1)
  1. GAS-X EXTSTR CHEWABLE TABS CHERRY CREME [Suspect]
     Indication: ABDOMINAL DISTENSION
     Dosage: 1 DF, PRN
     Route: 048

REACTIONS (2)
  - Diabetes mellitus [Unknown]
  - Blood glucose increased [Unknown]
